FAERS Safety Report 6165264-5 (Version None)
Quarter: 2009Q2

REPORT INFORMATION
  Report Type: 
  Country: None (occurrence: None)
  Receive Date: 20090423
  Receipt Date: 20090417
  Transmission Date: 20091009
  Serious: Yes (Other)
  Sender: FDA-Public Use
  Company Number: A0773851A

PATIENT
  Age: 59 Year
  Sex: Female
  Weight: 97.7 kg

DRUGS (1)
  1. LOVAZA [Suspect]
     Indication: DRUG USE FOR UNKNOWN INDICATION
     Dosage: 2CAP TWICE PER DAY
     Route: 065

REACTIONS (6)
  - ALANINE AMINOTRANSFERASE INCREASED [None]
  - ALOPECIA [None]
  - ASPARTATE AMINOTRANSFERASE INCREASED [None]
  - EMOTIONAL DISTRESS [None]
  - INFLAMMATION [None]
  - SCIATICA [None]
